FAERS Safety Report 7393140-9 (Version None)
Quarter: 2011Q2

REPORT INFORMATION
  Report Type: 
  Country: None (occurrence: None)
  Receive Date: 20110404
  Receipt Date: 20110321
  Transmission Date: 20111010
  Serious: Yes (Hospitalization, Other)
  Sender: FDA-Public Use
  Company Number: PHHY2010US82331

PATIENT
  Sex: Female
  Weight: 146 kg

DRUGS (14)
  1. LIPITOR [Concomitant]
     Dosage: 20 MG, QD
     Route: 048
  2. POTASSIUM [Concomitant]
     Dosage: UNK
  3. COREG [Concomitant]
     Dosage: 3.125 MG, BID
  4. NAPROXEN [Concomitant]
  5. PROTONIX [Concomitant]
     Dosage: 40 MG, 1T, QD
     Route: 048
  6. VITAMIN B-12 [Concomitant]
     Dosage: 1000 UG
  7. ACETAMINOPHEN [Concomitant]
     Dosage: 325 MG, PM
  8. RANEXA [Concomitant]
     Dosage: 1000 MG, TID
  9. ASPIRIN [Concomitant]
     Dosage: 81 MG, QD
     Route: 048
  10. COLCHICINE [Concomitant]
  11. RECLAST [Suspect]
     Indication: OSTEOPENIA
     Dosage: 5 MG, UNK
     Route: 042
     Dates: start: 20100924
  12. DEMADEX [Concomitant]
     Dosage: 100 MG, HALF TABLET QD
  13. NITRO-DUR [Concomitant]
     Dosage: 0.4 MG/HR, QD
  14. CITRACAL + D [Concomitant]
     Dosage: 315MG-200, ONE TABLET QD
     Route: 048

REACTIONS (21)
  - VITAMIN B12 DEFICIENCY [None]
  - RESPIRATORY TRACT INFECTION [None]
  - COSTOVERTEBRAL ANGLE TENDERNESS [None]
  - BLOOD UREA INCREASED [None]
  - GLOMERULAR FILTRATION RATE DECREASED [None]
  - MALAISE [None]
  - ASTHENIA [None]
  - CORONARY ARTERY DISEASE [None]
  - OSTEOARTHRITIS [None]
  - DYSPNOEA EXERTIONAL [None]
  - OEDEMA [None]
  - JOINT SWELLING [None]
  - PRODUCTIVE COUGH [None]
  - BLOOD CREATINE INCREASED [None]
  - FLANK PAIN [None]
  - BLOOD CREATINE PHOSPHOKINASE INCREASED [None]
  - MUSCULAR WEAKNESS [None]
  - RENAL FAILURE ACUTE [None]
  - SOLITARY KIDNEY [None]
  - HYPERTENSION [None]
  - HYPERLIPIDAEMIA [None]
